FAERS Safety Report 7751316-2 (Version None)
Quarter: 2011Q3

REPORT INFORMATION
  Report Type: 
  Country: None (occurrence: None)
  Receive Date: 20110914
  Receipt Date: 20110901
  Transmission Date: 20111222
  Serious: Yes (Hospitalization)
  Sender: FDA-Public Use
  Company Number: GB-MYLANLABS-2011S1018169

PATIENT
  Age: 30 Year
  Sex: Male

DRUGS (3)
  1. AZATHIOPRINE [Suspect]
     Indication: CROHN'S DISEASE
     Route: 048
     Dates: end: 20110823
  2. CHOLESTYRAMINE [Concomitant]
     Indication: PRODUCT USED FOR UNKNOWN INDICATION
  3. VITAMIN B-12 [Concomitant]
     Indication: PRODUCT USED FOR UNKNOWN INDICATION

REACTIONS (7)
  - LETHARGY [None]
  - VOMITING [None]
  - NEUTROPENIC SEPSIS [None]
  - BODY TEMPERATURE INCREASED [None]
  - COLD SWEAT [None]
  - HEART RATE INCREASED [None]
  - MALAISE [None]
